FAERS Safety Report 5959505-4 (Version None)
Quarter: 2008Q4

REPORT INFORMATION
  Report Type: 
  Country: None (occurrence: None)
  Receive Date: 20081117
  Receipt Date: 20081106
  Transmission Date: 20090506
  Serious: Yes (Death)
  Sender: FDA-Public Use
  Company Number: GXKR2008CH10663

PATIENT
  Age: 82 Year
  Sex: Male

DRUGS (8)
  1. CEFPODOXIME PROXETIL [Suspect]
     Indication: WOUND INFECTION
     Dosage: 200 MG, QD, ORAL
     Route: 048
     Dates: start: 20081017, end: 20081018
  2. DEANXIT (FLUPENTIXOL, MELITRACEN) [Concomitant]
  3. OMEPRAZOLE [Concomitant]
  4. PLAVIX [Concomitant]
  5. MADOPAR (BENSERAZIDE HYDROCHLORIDE, LEVODOPA) [Concomitant]
  6. CARVEDILOL [Concomitant]
  7. DIOVAN [Concomitant]
  8. TORSEMIDE [Concomitant]

REACTIONS (7)
  - BLISTER [None]
  - DERMATITIS EXFOLIATIVE [None]
  - EPIDERMOLYSIS [None]
  - MUCOSAL HAEMORRHAGE [None]
  - ORAL MUCOSA EROSION [None]
  - SKIN HAEMORRHAGE [None]
  - TOXIC EPIDERMAL NECROLYSIS [None]
